FAERS Safety Report 25505448 (Version 1)
Quarter: 2025Q3

REPORT INFORMATION
  Report Type: Spontaneous
  Country: US (occurrence: None)
  Receive Date: 20250702
  Receipt Date: 20250702
  Transmission Date: 20251021
  Serious: No
  Sender: FDA-CTU
  Company Number: None

PATIENT

DRUGS (1)
  1. QELBREE [Suspect]
     Active Substance: VILOXAZINE HYDROCHLORIDE
     Dosage: 30 CAPSULE(S) DAILY ORAL
     Route: 048
     Dates: start: 20241213, end: 20250625

REACTIONS (1)
  - Renal impairment [None]

NARRATIVE: CASE EVENT DATE: 20250605
